FAERS Safety Report 5121634-5 (Version None)
Quarter: 2006Q4

REPORT INFORMATION
  Report Type: 
  Country: None (occurrence: None)
  Receive Date: 20061003
  Receipt Date: 20060927
  Transmission Date: 20070319
  Serious: Yes (Disabling)
  Sender: FDA-Public Use
  Company Number: FRWYE048727SEP06

PATIENT
  Age: 50 Year
  Sex: Female

DRUGS (4)
  1. EFFEXOR XR [Suspect]
     Indication: DEPRESSION
     Dosage: SEE IMAGE
     Route: 048
     Dates: start: 20050801, end: 20060801
  2. EFFEXOR XR [Suspect]
     Indication: GENERALISED ANXIETY DISORDER
     Dosage: SEE IMAGE
     Route: 048
     Dates: start: 20050801, end: 20060801
  3. EFFEXOR XR [Suspect]
     Indication: DEPRESSION
     Dosage: SEE IMAGE
     Route: 048
     Dates: start: 20060801, end: 20060901
  4. EFFEXOR XR [Suspect]
     Indication: GENERALISED ANXIETY DISORDER
     Dosage: SEE IMAGE
     Route: 048
     Dates: start: 20060801, end: 20060901

REACTIONS (12)
  - DIARRHOEA [None]
  - DRUG WITHDRAWAL SYNDROME [None]
  - FEELING COLD [None]
  - HEADACHE [None]
  - HOT FLUSH [None]
  - INSOMNIA [None]
  - LIBIDO INCREASED [None]
  - MIDDLE INSOMNIA [None]
  - NAUSEA [None]
  - NERVOUSNESS [None]
  - PARAESTHESIA ORAL [None]
  - VOMITING [None]
